FAERS Safety Report 9808445 (Version 1)
Quarter: 2014Q1

REPORT INFORMATION
  Report Type: Spontaneous
  Country: CA (occurrence: CA)
  Receive Date: 20140110
  Receipt Date: 20140110
  Transmission Date: 20141002
  Serious: Yes (Death)
  Sender: FDA-Public Use
  Company Number: CA-ELI_LILLY_AND_COMPANY-CA201401002514

PATIENT
  Sex: 0

DRUGS (4)
  1. GEMCITABINE HYDROCHLORIDE [Suspect]
     Indication: NON-HODGKIN^S LYMPHOMA
     Route: 065
  2. INOTUZUMAB OZOGAMICIN\RITUXIMAB [Suspect]
     Indication: NON-HODGKIN^S LYMPHOMA
     Route: 065
  3. DEXAMETHASONE [Suspect]
     Indication: NON-HODGKIN^S LYMPHOMA
     Route: 048
  4. CISPLATIN [Suspect]
     Indication: NON-HODGKIN^S LYMPHOMA
     Route: 065

REACTIONS (1)
  - Oesophageal obstruction [Fatal]
